FAERS Safety Report 16729421 (Version 5)
Quarter: 2020Q1

REPORT INFORMATION
  Report Type: Spontaneous
  Country: US (occurrence: US)
  Receive Date: 20190822
  Receipt Date: 20200302
  Transmission Date: 20200409
  Serious: No
  Sender: FDA-Public Use
  Company Number: US-PFIZER INC-2019356956

PATIENT
  Age: 57 Year
  Sex: Female
  Weight: 51 kg

DRUGS (4)
  1. LYRICA [Suspect]
     Active Substance: PREGABALIN
     Indication: INTERVERTEBRAL DISC PROTRUSION
     Dosage: 75 MG, DAILY [75 MG QAM EVERY MORNING] (TAKE 1 CAPSULE (75 MG TOTAL) BY MOUTH DAILY)
     Route: 048
  2. LYRICA [Suspect]
     Active Substance: PREGABALIN
     Dosage: 150 MG, 2X/DAY (150 MG BID (TWICE A DAY) (SOMETIME SHE JUST TAKES IT ONCE A DAY)
     Route: 048
     Dates: start: 20191114
  3. LYRICA [Suspect]
     Active Substance: PREGABALIN
     Dosage: 150 MG, DAILY (150 MG QHS AT BED TIME) (TAKE1 CAPSULE (150 MG TOTAL) BY MOUTH NIGHTLY)
     Route: 048
  4. NORCO [Concomitant]
     Active Substance: ACETAMINOPHEN\HYDROCODONE BITARTRATE
     Indication: INTERVERTEBRAL DISC PROTRUSION
     Dosage: 4 DF, DAILY (2 TAB IN AM 1 AFTERNOON AND 1 QHS (EVERY NIGHT AT BEDTIME))

REACTIONS (6)
  - Somnolence [Unknown]
  - Arthralgia [Unknown]
  - Drug intolerance [Unknown]
  - Intentional product use issue [Unknown]
  - Therapeutic product effect incomplete [Unknown]
  - Fatigue [Unknown]
